FAERS Safety Report 9761170 (Version 1)
Quarter: 2013Q4

REPORT INFORMATION
  Report Type: Spontaneous
  Country: US (occurrence: US)
  Receive Date: 20131216
  Receipt Date: 20131216
  Transmission Date: 20140711
  Serious: Yes (Death)
  Sender: FDA-Public Use
  Company Number: US-PFIZER INC-2013357999

PATIENT
  Age: 77 Year
  Sex: Male

DRUGS (5)
  1. ZOLOFT [Suspect]
     Indication: DEPRESSION
     Dosage: 50 MG, UNK
  2. ZOLOFT [Suspect]
     Indication: ANXIETY
     Dosage: 100 MG, UNK
  3. ZOLOFT [Suspect]
     Indication: POST-TRAUMATIC STRESS DISORDER
     Dosage: 200 MG, UNK
  4. ZOLOFT [Suspect]
     Dosage: 100 MG, UNK
  5. ZOLOFT [Suspect]
     Dosage: UNK

REACTIONS (2)
  - Completed suicide [Fatal]
  - Drug withdrawal syndrome [Unknown]
